FAERS Safety Report 8300365-4 (Version None)
Quarter: 2012Q2

REPORT INFORMATION
  Report Type: 
  Country: None (occurrence: None)
  Receive Date: 20120420
  Receipt Date: 20120412
  Transmission Date: 20120825
  Serious: Yes (Hospitalization)
  Sender: FDA-Public Use
  Company Number: GB-JNJFOC-20120407065

PATIENT
  Sex: Female

DRUGS (3)
  1. SIMPONI [Suspect]
     Route: 058
     Dates: start: 20120323
  2. SIMPONI [Suspect]
     Indication: PRODUCT USED FOR UNKNOWN INDICATION
     Route: 058
  3. WARFARIN SODIUM [Suspect]
     Indication: PRODUCT USED FOR UNKNOWN INDICATION

REACTIONS (3)
  - LARGE INTESTINAL ULCER HAEMORRHAGE [None]
  - JOINT SWELLING [None]
  - DYSPNOEA [None]
